FAERS Safety Report 23748354 (Version 2)
Quarter: 2024Q3

REPORT INFORMATION
  Report Type: Spontaneous
  Country: US (occurrence: US)
  Receive Date: 20240416
  Receipt Date: 20240917
  Transmission Date: 20241016
  Serious: No
  Sender: SANOFI AVENTIS
  Company Number: US-SA-SAC20240410001298

PATIENT
  Sex: Female
  Weight: 140 kg

DRUGS (16)
  1. DUPIXENT [Suspect]
     Active Substance: DUPILUMAB
     Indication: Asthma
     Dosage: 300 MG, QOW
     Route: 058
  2. TADALAFIL [Suspect]
     Active Substance: TADALAFIL
     Dosage: UNK
  3. MACITENTAN [Suspect]
     Active Substance: MACITENTAN
     Dosage: UNK
  4. ONDANSETRON HYDROCHLORIDE [Concomitant]
     Active Substance: ONDANSETRON HYDROCHLORIDE
     Dosage: UNK
  5. IPRATROPIUM BROMIDE [Concomitant]
     Active Substance: IPRATROPIUM BROMIDE\IPRATROPIUM BROMIDE ANHYDROUS
     Dosage: UNK
  6. MAGNESIUM OXIDE [Concomitant]
     Active Substance: MAGNESIUM OXIDE
     Dosage: UNK
  7. POTASSIUM CHLORIDE [Concomitant]
     Active Substance: POTASSIUM CHLORIDE
     Dosage: UNK
  8. BUMETANIDE [Concomitant]
     Active Substance: BUMETANIDE
     Dosage: UNK
  9. VITAMINS NOS [Concomitant]
     Active Substance: VITAMINS
     Dosage: UNK
  10. ALBUTEROL SULFATE [Concomitant]
     Active Substance: ALBUTEROL SULFATE
     Dosage: UNK
  11. OXYGEN [Concomitant]
     Active Substance: OXYGEN
     Dosage: UNK
  12. OPSUMIT [Concomitant]
     Active Substance: MACITENTAN
  13. JARDIANCE [Concomitant]
     Active Substance: EMPAGLIFLOZIN
  14. TYVASO [Concomitant]
     Active Substance: TREPROSTINIL
  15. FAMOTIDINE [Concomitant]
     Active Substance: FAMOTIDINE
  16. EPLERENONE [Concomitant]
     Active Substance: EPLERENONE

REACTIONS (2)
  - Illness [Unknown]
  - Cough [Unknown]
